FAERS Safety Report 6384733-6 (Version None)
Quarter: 2009Q4

REPORT INFORMATION
  Report Type: 
  Country: None (occurrence: None)
  Receive Date: 20091001
  Receipt Date: 20090922
  Transmission Date: 20100525
  Serious: Yes (Other)
  Sender: FDA-Public Use
  Company Number: CA-GILEAD-2009-0023663

PATIENT
  Sex: Male

DRUGS (4)
  1. VIREAD [Suspect]
     Indication: HEPATITIS B
     Dates: start: 20081001, end: 20090725
  2. LAMIVUDINE [Concomitant]
     Indication: HEPATITIS B
     Dates: start: 20070401, end: 20090725
  3. PANTALOC [Concomitant]
  4. MULTI-VITAMIN [Concomitant]

REACTIONS (1)
  - MOTOR NEURONE DISEASE [None]
